FAERS Safety Report 17849513 (Version 1)
Quarter: 2020Q2

REPORT INFORMATION
  Report Type: Report from Study
  Country: GT (occurrence: GT)
  Receive Date: 20200602
  Receipt Date: 20200602
  Transmission Date: 20200714
  Serious: Yes (Other)
  Sender: FDA-Public Use
  Company Number: NVSC2020GT152006

PATIENT
  Age: 28 Year
  Sex: Male

DRUGS (2)
  1. EXFORGE HCT [Suspect]
     Active Substance: AMLODIPINE BESYLATE\HYDROCHLOROTHIAZIDE\VALSARTAN
     Indication: HYPERTENSION
     Dosage: 1 DF (AMLODIPINE 5MG/HYDROCHLOROTHIAZIDE 12.5MG/VALSARTAN 160 MG)
     Route: 065
     Dates: start: 202001
  2. EXFORGE HCT [Suspect]
     Active Substance: AMLODIPINE BESYLATE\HYDROCHLOROTHIAZIDE\VALSARTAN
     Indication: CARDIOVASCULAR DISORDER

REACTIONS (3)
  - Drug dependence [Unknown]
  - Asthenia [Unknown]
  - Malaise [Unknown]
